FAERS Safety Report 7413035-1 (Version None)
Quarter: 2011Q2

REPORT INFORMATION
  Report Type: 
  Country: None (occurrence: None)
  Receive Date: 20110405
  Receipt Date: 20110322
  Transmission Date: 20111010
  Serious: Yes (Life-Threatening, Other)
  Sender: FDA-Public Use
  Company Number: 2009000340

PATIENT
  Age: 83 Year
  Sex: Male

DRUGS (8)
  1. GLYCAL-AMIN [Concomitant]
  2. ERLOTINIB (ERLOTINIB) (TABLET) (ERLOTINIB) [Suspect]
     Indication: PANCREATIC CARCINOMA METASTATIC
     Dosage: 100 MG, QD, ORAL
     Route: 048
     Dates: start: 20081223
  3. CIMETIDINE [Concomitant]
  4. COMBIZYM (COMBIZYM) [Concomitant]
  5. GEMCITABINE [Suspect]
     Indication: PANCREATIC CARCINOMA METASTATIC
     Dosage: 1320 MG, WEEKLY, INTRAVENOUS
     Route: 042
     Dates: start: 20081223
  6. LAXATIVE NOS [Suspect]
     Indication: PRODUCT USED FOR UNKNOWN INDICATION
  7. NICAMETATE (NICAMETATE) [Concomitant]
  8. MODURETIC 5-50 [Concomitant]

REACTIONS (12)
  - DIARRHOEA [None]
  - ANAEMIA [None]
  - TROPONIN I INCREASED [None]
  - NEOPLASM MALIGNANT [None]
  - COUGH [None]
  - SPUTUM DISCOLOURED [None]
  - PANCREATIC CARCINOMA METASTATIC [None]
  - PLATELET COUNT DECREASED [None]
  - LOWER RESPIRATORY TRACT INFLAMMATION [None]
  - BLOOD CALCIUM DECREASED [None]
  - BLOOD CREATINE PHOSPHOKINASE MB DECREASED [None]
  - HYPOTENSION [None]
